FAERS Safety Report 8567746-5 (Version None)
Quarter: 2012Q3

REPORT INFORMATION
  Report Type: 
  Country: None (occurrence: None)
  Receive Date: 20120803
  Receipt Date: 20120723
  Transmission Date: 20120928
  Serious: Yes (Other)
  Sender: FDA-Public Use
  Company Number: US-009507513-1207USA010961

PATIENT

DRUGS (3)
  1. LIPITOR [Concomitant]
  2. PRAVASTATIN SODIUM [Suspect]
     Dosage: 10 MG, UNK
  3. ZOCOR [Suspect]
     Dosage: 10 MG, UNK

REACTIONS (3)
  - OSTEOARTHRITIS [None]
  - ARTHROPATHY [None]
  - MUSCULAR WEAKNESS [None]
